FAERS Safety Report 5343692-5 (Version None)
Quarter: 2007Q2

REPORT INFORMATION
  Report Type: 
  Country: None (occurrence: None)
  Receive Date: 20070531
  Receipt Date: 20070518
  Transmission Date: 20071010
  Serious: Yes (Death)
  Sender: FDA-Public Use
  Company Number: MC200700416

PATIENT
  Sex: Male

DRUGS (1)
  1. ANGIOMAX [Suspect]
     Indication: PERCUTANEOUS CORONARY INTERVENTION

REACTIONS (2)
  - CARDIAC PROCEDURE COMPLICATION [None]
  - CORONARY ARTERY PERFORATION [None]
